FAERS Safety Report 14235747 (Version 1)
Quarter: 2017Q4

REPORT INFORMATION
  Report Type: Spontaneous
  Country: BE (occurrence: BE)
  Receive Date: 20171129
  Receipt Date: 20171129
  Transmission Date: 20180321
  Serious: Yes (Other)
  Sender: FDA-Public Use
  Company Number: BE-ROCHE-1960538

PATIENT
  Age: 56 Year
  Sex: Female
  Weight: 85 kg

DRUGS (3)
  1. MABTHERA [Suspect]
     Active Substance: RITUXIMAB
     Dosage: 4 CYCLES
     Route: 042
     Dates: start: 201706
  2. MABTHERA [Suspect]
     Active Substance: RITUXIMAB
     Route: 042
     Dates: start: 201711
  3. MABTHERA [Suspect]
     Active Substance: RITUXIMAB
     Indication: WALDENSTROM^S MACROGLOBULINAEMIA
     Dosage: 6 CYCLES
     Route: 042
     Dates: start: 201609, end: 201611

REACTIONS (3)
  - Myelodysplastic syndrome [Unknown]
  - Thrombocytopenia [Unknown]
  - Waldenstrom^s macroglobulinaemia recurrent [Not Recovered/Not Resolved]

NARRATIVE: CASE EVENT DATE: 201706
